FAERS Safety Report 5092665-9 (Version None)
Quarter: 2006Q3

REPORT INFORMATION
  Report Type: 
  Country: None (occurrence: None)
  Receive Date: 20060727
  Receipt Date: 20060609
  Transmission Date: 20061208
  Serious: Yes (Other)
  Sender: FDA-Public Use
  Company Number: 2006075102

PATIENT
  Age: 83 Year
  Sex: Female
  Weight: 101.1521 kg

DRUGS (9)
  1. LYRICA [Suspect]
     Indication: NEUROPATHY
     Dosage: 150 MG (50 MG,3 IN 1 D)
     Dates: start: 20060608
  2. LASIX [Concomitant]
  3. GLIPIZIDE [Concomitant]
  4. SYNTHROID (LEVOTHYROID SODIUM) [Concomitant]
  5. NORVASC [Concomitant]
  6. K-DUR 10 [Concomitant]
  7. LISINOPRIL [Concomitant]
  8. CENTRUM (MINERALS NOS, VITAMINS NOS) [Concomitant]
  9. BACTRIM [Concomitant]

REACTIONS (2)
  - DIZZINESS [None]
  - EUPHORIC MOOD [None]
